FAERS Safety Report 11176577 (Version 1)
Quarter: 2015Q2

REPORT INFORMATION
  Report Type: Spontaneous
  Country: FR (occurrence: FR)
  Receive Date: 20150610
  Receipt Date: 20150610
  Transmission Date: 20150821
  Serious: Yes (Hospitalization)
  Sender: FDA-Public Use
  Company Number: FR-HOSPIRA-2885604

PATIENT
  Age: 4 Year
  Sex: Female

DRUGS (1)
  1. VINCRISTINE SULFATE. [Suspect]
     Active Substance: VINCRISTINE SULFATE
     Indication: ACUTE LYMPHOCYTIC LEUKAEMIA
     Route: 042
     Dates: start: 20140827, end: 20141028

REACTIONS (4)
  - Diplopia [Recovered/Resolved]
  - Eyelid ptosis [Recovered/Resolved]
  - IIIrd nerve paralysis [Recovered/Resolved]
  - Neuropathy peripheral [Recovered/Resolved]

NARRATIVE: CASE EVENT DATE: 20140920
